FAERS Safety Report 6679812-X (Version None)
Quarter: 2010Q2

REPORT INFORMATION
  Report Type: 
  Country: None (occurrence: None)
  Receive Date: 20100413
  Receipt Date: 20090407
  Transmission Date: 20101027
  Serious: No
  Sender: FDA-Public Use
  Company Number: US-ASTRAZENECA-2009UW08737

PATIENT
  Sex: Female

DRUGS (3)
  1. ATENOLOL [Suspect]
     Route: 048
  2. SELODIPINE [Concomitant]
  3. PRINZIDE [Concomitant]

REACTIONS (4)
  - DRY MOUTH [None]
  - MULTIPLE ALLERGIES [None]
  - NAUSEA [None]
  - VOMITING [None]
